FAERS Safety Report 22081078 (Version 2)
Quarter: 2023Q1

REPORT INFORMATION
  Report Type: Spontaneous
  Country: JP (occurrence: JP)
  Receive Date: 20230309
  Receipt Date: 20230322
  Transmission Date: 20230418
  Serious: Yes (Death, Hospitalization)
  Sender: FDA-Public Use
  Company Number: JP-TEVA-2023-JP-2863293

PATIENT
  Age: 56 Year
  Sex: Female

DRUGS (16)
  1. PREDNISOLONE [Suspect]
     Active Substance: PREDNISOLONE
     Indication: Febrile neutropenia
     Dosage: 40 MILLIGRAM DAILY;
     Route: 065
  2. PREDNISOLONE [Suspect]
     Active Substance: PREDNISOLONE
     Indication: Pneumocystis jirovecii pneumonia
     Route: 065
  3. ADRIAMYCIN [Suspect]
     Active Substance: DOXORUBICIN HYDROCHLORIDE
     Indication: Nodular lymphocyte predominant Hodgkin lymphoma
     Dosage: ABVD REGIMEN
     Route: 065
  4. BLEOMYCIN [Suspect]
     Active Substance: BLEOMYCIN SULFATE
     Indication: Nodular lymphocyte predominant Hodgkin lymphoma
     Dosage: ABVD REGIMEN
     Route: 065
  5. VINBLASTINE [Suspect]
     Active Substance: VINBLASTINE
     Indication: Nodular lymphocyte predominant Hodgkin lymphoma
     Dosage: ABVD REGIMEN
     Route: 065
  6. DACARBAZINE [Suspect]
     Active Substance: DACARBAZINE
     Indication: Nodular lymphocyte predominant Hodgkin lymphoma
     Dosage: ABVD REGIMEN
     Route: 065
  7. BRENTUXIMAB VEDOTIN [Suspect]
     Active Substance: BRENTUXIMAB VEDOTIN
     Indication: Nodular lymphocyte predominant Hodgkin lymphoma
     Route: 065
  8. GEMCITABINE [Suspect]
     Active Substance: GEMCITABINE
     Indication: Nodular lymphocyte predominant Hodgkin lymphoma
     Dosage: GDP REGIMEN
     Route: 065
  9. DEXAMETHASONE [Suspect]
     Active Substance: DEXAMETHASONE
     Indication: Nodular lymphocyte predominant Hodgkin lymphoma
     Dosage: GDP REGIMEN
     Route: 065
  10. CISPLATIN [Suspect]
     Active Substance: CISPLATIN
     Indication: Nodular lymphocyte predominant Hodgkin lymphoma
     Dosage: GDP REGIMEN
     Route: 065
  11. RANIMUSTINE [Suspect]
     Active Substance: RANIMUSTINE
     Indication: Bone marrow conditioning regimen
     Route: 065
  12. ETOPOSIDE [Suspect]
     Active Substance: ETOPOSIDE
     Indication: Bone marrow conditioning regimen
     Route: 065
  13. CYTARABINE [Suspect]
     Active Substance: CYTARABINE
     Indication: Bone marrow conditioning regimen
     Route: 065
  14. MELPHALAN [Suspect]
     Active Substance: MELPHALAN
     Indication: Bone marrow conditioning regimen
     Route: 065
  15. CEFEPIME [Concomitant]
     Active Substance: CEFEPIME HYDROCHLORIDE
     Indication: Febrile neutropenia
     Route: 065
  16. FILGRASTIM [Concomitant]
     Active Substance: FILGRASTIM
     Indication: Febrile neutropenia
     Route: 065

REACTIONS (3)
  - Pneumocystis jirovecii pneumonia [Fatal]
  - Drug ineffective [Fatal]
  - Gastroenteritis bacterial [Unknown]
